FAERS Safety Report 8018656-3 (Version None)
Quarter: 2012Q1

REPORT INFORMATION
  Report Type: 
  Country: None (occurrence: None)
  Receive Date: 20120103
  Receipt Date: 20120103
  Transmission Date: 20120608
  Serious: No
  Sender: FDA-Public Use
  Company Number: None

PATIENT
  Age: 64 Year
  Sex: Male

DRUGS (1)
  1. BORTEZOMIB [Suspect]
     Indication: MULTIPLE MYELOMA
     Dates: start: 20111107, end: 20111110

REACTIONS (2)
  - CONSTIPATION [None]
  - URINARY RETENTION [None]
